FAERS Safety Report 4687887-2 (Version None)
Quarter: 2005Q2

REPORT INFORMATION
  Report Type: 
  Country: None (occurrence: None)
  Receive Date: 20050608
  Receipt Date: 20050525
  Transmission Date: 20051028
  Serious: Yes (Other)
  Sender: FDA-Public Use
  Company Number: 430013M05USA

PATIENT
  Age: 46 Year
  Sex: Male

DRUGS (3)
  1. NOVANTRONE [Suspect]
     Indication: MULTIPLE SCLEROSIS
     Dosage: 12 MG/M2 1 IN 3 MONTHS INTRAVENOUS
     Route: 042
     Dates: start: 20031201, end: 20041201
  2. REBIF (ITNERFERON BETA) [Concomitant]
  3. ANZEMET (DOLASETRON MESILATE) [Concomitant]

REACTIONS (1)
  - ACUTE MYELOID LEUKAEMIA [None]
